FAERS Safety Report 6461874-6 (Version None)
Quarter: 2009Q4

REPORT INFORMATION
  Report Type: 
  Country: None (occurrence: None)
  Receive Date: 20091130
  Receipt Date: 20091120
  Transmission Date: 20100525
  Serious: Yes (Other)
  Sender: FDA-Public Use
  Company Number: PHHY2009JP49526

PATIENT
  Age: 69 Year
  Sex: Male

DRUGS (1)
  1. ZOMETA [Suspect]
     Indication: METASTASES TO BONE
     Dosage: 4 MG, QMO
     Route: 041

REACTIONS (3)
  - IMPAIRED HEALING [None]
  - OSTEONECROSIS [None]
  - PAIN [None]
